FAERS Safety Report 25947857 (Version 1)
Quarter: 2025Q4

REPORT INFORMATION
  Report Type: Report from Study
  Country: US (occurrence: US)
  Receive Date: 20251022
  Receipt Date: 20251022
  Transmission Date: 20260118
  Serious: Yes (Other)
  Sender: ALEXION PHARMACEUTICALS
  Company Number: A202303995

PATIENT
  Age: 49 Year
  Sex: Female

DRUGS (1)
  1. STRENSIQ [Suspect]
     Active Substance: ASFOTASE ALFA
     Indication: Phosphorus metabolism disorder
     Dosage: 160 MILLIGRAM, TIW
     Route: 065

REACTIONS (11)
  - Stenosis [Unknown]
  - Muscular weakness [Unknown]
  - Myalgia [Unknown]
  - Brain fog [Unknown]
  - Anxiety [Unknown]
  - Fatigue [Unknown]
  - Iris hyperpigmentation [Unknown]
  - Enamel anomaly [Unknown]
  - Joint hyperextension [Unknown]
  - Joint range of motion decreased [Unknown]
  - Grip strength decreased [Unknown]

NARRATIVE: CASE EVENT DATE: 20250508
